FAERS Safety Report 7215861-0 (Version None)
Quarter: 2011Q1

REPORT INFORMATION
  Report Type: 
  Country: None (occurrence: None)
  Receive Date: 20110107
  Receipt Date: 20100916
  Transmission Date: 20110831
  Serious: Yes (Life-Threatening, Other)
  Sender: FDA-Public Use
  Company Number: FR-CELGENEUS-056-21880-10082891

PATIENT
  Age: 53 Year
  Sex: Male

DRUGS (1)
  1. REVLIMID [Suspect]
     Indication: MULTIPLE MYELOMA
     Route: 048
     Dates: start: 20070911, end: 20070930

REACTIONS (8)
  - CEREBRAL HAEMANGIOMA [None]
  - GENERAL PHYSICAL HEALTH DETERIORATION [None]
  - HYPOAESTHESIA [None]
  - LUNG DISORDER [None]
  - CEREBROVASCULAR ACCIDENT [None]
  - COMA [None]
  - CEREBRAL HAEMATOMA [None]
  - DYSPHAGIA [None]
